FAERS Safety Report 14332669 (Version 3)
Quarter: 2018Q2

REPORT INFORMATION
  Report Type: Spontaneous
  Country: GB (occurrence: GB)
  Receive Date: 20171228
  Receipt Date: 20180524
  Transmission Date: 20180711
  Serious: Yes (Other)
  Sender: FDA-Public Use
  Company Number: GB-PFIZER INC-2017546304

PATIENT
  Age: 64 Year
  Sex: Female

DRUGS (4)
  1. FLUOROURACIL. [Suspect]
     Active Substance: FLUOROURACIL
     Indication: BREAST CANCER
     Dosage: 600 MG/M2, EVERY 3 WEEKS
     Route: 042
  2. CYCLOPHOSPHAMIDE. [Suspect]
     Active Substance: CYCLOPHOSPHAMIDE
     Indication: BREAST CANCER
     Dosage: 750 MG/M2, EVERY 3 WEEKS
     Route: 042
  3. FOLINIC ACID [Concomitant]
     Active Substance: LEUCOVORIN
     Indication: BREAST CANCER
     Dosage: UNK, EVERY 3 WEEKS
     Route: 048
  4. METHOTREXATE SODIUM. [Suspect]
     Active Substance: METHOTREXATE SODIUM
     Indication: BREAST CANCER
     Dosage: 50 MG/M2, EVERY 3 WEEKS
     Route: 042

REACTIONS (6)
  - Disease recurrence [Recovered/Resolved]
  - Erythema [Recovered/Resolved]
  - Ulcer [Recovered/Resolved]
  - Therapeutic response decreased [Unknown]
  - Scar pain [Recovered/Resolved]
  - Inflammation [Recovered/Resolved]
